FAERS Safety Report 10005565 (Version 1)
Quarter: 2014Q1

REPORT INFORMATION
  Report Type: Report from Study
  Country: CN (occurrence: CN)
  Receive Date: 20140313
  Receipt Date: 20140313
  Transmission Date: 20141002
  Serious: Yes (Other)
  Sender: FDA-Public Use
  Company Number: CN-ROCHE-1361659

PATIENT
  Sex: Male

DRUGS (5)
  1. AVASTIN [Suspect]
     Indication: COLON CANCER
     Route: 041
     Dates: start: 201311, end: 201401
  2. OXALIPLATIN [Concomitant]
     Indication: COLON CANCER
     Route: 041
     Dates: start: 201311
  3. 5-FU [Concomitant]
     Indication: COLON CANCER
     Route: 041
     Dates: start: 201311
  4. CALCIUM FOLINATE [Concomitant]
     Indication: COLON CANCER
     Route: 041
     Dates: start: 201311
  5. BRUCEOLIC OIL [Concomitant]
     Indication: COLON CANCER
     Route: 041
     Dates: start: 201311

REACTIONS (1)
  - Metastases to lymph nodes [Not Recovered/Not Resolved]
